FAERS Safety Report 18207251 (Version 3)
Quarter: 2020Q3

REPORT INFORMATION
  Report Type: Report from Study
  Country: DE (occurrence: DE)
  Receive Date: 20200828
  Receipt Date: 20200903
  Transmission Date: 20201103
  Serious: Yes (Death, Other)
  Sender: FDA-Public Use
  Company Number: DE-PFIZER INC-2020330381

PATIENT
  Sex: Male

DRUGS (10)
  1. CORTISONE [Concomitant]
     Active Substance: CORTISONE
     Dosage: UNK
  2. ZAVEDOS [Suspect]
     Active Substance: IDARUBICIN
     Indication: ACUTE MYELOID LEUKAEMIA RECURRENT
     Dosage: 12 MG/M2, STARTED ON DAY 2 AND CONTINUED THROUGH DAY 4, AS A ONE?HOUR SHORT INFUSION
  3. CYTARABINE. [Suspect]
     Active Substance: CYTARABINE
     Indication: ACUTE MYELOID LEUKAEMIA RECURRENT
     Dosage: 2000 MG/M2, HIGH?DOSE, FROM DAYS 1 TO 4 AS A 3?HOUR SHORT INFUSION
  4. FLUDARABINE [Suspect]
     Active Substance: FLUDARABINE PHOSPHATE
     Indication: ACUTE MYELOID LEUKAEMIA RECURRENT
     Dosage: 30 MG/M2, DAILY FROM DAYS 1 TO 4 AS A 30?MINUTE SHORT INFUSION (SI)
  5. IMMUNOGLOBULINS NOS [Concomitant]
     Active Substance: IMMUNE GLOBULIN NOS
     Dosage: UNK
  6. COTRIMOXAZOLE [Concomitant]
     Active Substance: SULFAMETHOXAZOLE\TRIMETHOPRIM
     Dosage: 180 MG/M2, CYCLIC
  7. NEUPOGEN [Suspect]
     Active Substance: FILGRASTIM
     Indication: ACUTE MYELOID LEUKAEMIA RECURRENT
     Dosage: 400 UG/M2, DAILY FROM DAY 0 UNTIL ANC IN THE BLOOD HAD RECOVERED TO }1000/UL
     Route: 058
  8. ZAVEDOS [Suspect]
     Active Substance: IDARUBICIN
     Dosage: 72 MG/M2, CYCLIC
  9. ACYCLOVIR [ACICLOVIR] [Concomitant]
     Active Substance: ACYCLOVIR
     Dosage: UNK
  10. VITAMIN B6 [Concomitant]
     Active Substance: PYRIDOXINE HYDROCHLORIDE
     Dosage: UNK

REACTIONS (3)
  - Aspergillus infection [Fatal]
  - Neutropenia [Fatal]
  - Septic shock [Fatal]
